FAERS Safety Report 4372733-7 (Version None)
Quarter: 2004Q2

REPORT INFORMATION
  Report Type: 
  Country: None (occurrence: None)
  Receive Date: 20040526
  Receipt Date: 20040511
  Transmission Date: 20050107
  Serious: Yes (Hospitalization)
  Sender: FDA-Public Use
  Company Number: 2004S1000097

PATIENT
  Sex: Female

DRUGS (4)
  1. CUBICIN [Suspect]
     Indication: INTRASPINAL ABSCESS
     Dosage: 300 MG;UNKNOWN; IV
     Route: 042
  2. CUBICIN [Suspect]
     Indication: STAPHYLOCOCCAL INFECTION
     Dosage: 300 MG;UNKNOWN; IV
     Route: 042
  3. PRIMAXIN [Concomitant]
  4. GENTAMICIN [Concomitant]

REACTIONS (4)
  - ENDOCARDITIS [None]
  - HAEMATURIA [None]
  - NEPHRITIS INTERSTITIAL [None]
  - RENAL TUBULAR NECROSIS [None]
